FAERS Safety Report 7767240-5 (Version None)
Quarter: 2011Q3

REPORT INFORMATION
  Report Type: 
  Country: None (occurrence: None)
  Receive Date: 20110922
  Receipt Date: 20110318
  Transmission Date: 20111222
  Serious: No
  Sender: FDA-Public Use
  Company Number: US-ASTRAZENECA-2007UW05065

PATIENT
  Age: 26 Year
  Sex: Female
  Weight: 120.2 kg

DRUGS (7)
  1. SEROQUEL [Suspect]
     Route: 048
     Dates: start: 20060120
  2. REYATAZ [Concomitant]
     Dates: start: 20060111
  3. ROZEREM [Concomitant]
     Dates: start: 20100524
  4. SEROQUEL [Suspect]
     Indication: SLEEP DISORDER
     Route: 048
     Dates: start: 20000926, end: 20060301
  5. TRIZIVIR [Concomitant]
     Dates: start: 20060111
  6. FLUVOXAMINE MALEATE [Concomitant]
     Dates: start: 20080310
  7. GEODON [Concomitant]
     Dates: start: 20070101

REACTIONS (5)
  - HIV INFECTION [None]
  - HYPERLIPIDAEMIA [None]
  - OBESITY [None]
  - BLOOD CHOLESTEROL INCREASED [None]
  - DIABETES MELLITUS [None]
